FAERS Safety Report 4781440-8 (Version None)
Quarter: 2005Q3

REPORT INFORMATION
  Report Type: 
  Country: None (occurrence: None)
  Receive Date: 20050928
  Receipt Date: 20050830
  Transmission Date: 20060218
  Serious: Yes (Hospitalization, Other)
  Sender: FDA-Public Use
  Company Number: JP-BRISTOL-MYERS SQUIBB COMPANY-13099882

PATIENT
  Age: 69 Year
  Sex: Female

DRUGS (5)
  1. MEVALOTIN [Suspect]
     Indication: HYPERLIPIDAEMIA
     Route: 048
  2. NORVASC [Concomitant]
     Indication: HYPERTENSION
  3. ISOSORBIDE MONONITRATE [Concomitant]
     Indication: ANGINA PECTORIS
  4. HALCION [Concomitant]
     Indication: INSOMNIA
  5. PEON [Concomitant]

REACTIONS (4)
  - AORTIC DISSECTION [None]
  - DEHYDRATION [None]
  - RENAL FAILURE ACUTE [None]
  - RHABDOMYOLYSIS [None]
